FAERS Safety Report 21733168 (Version 1)
Quarter: 2022Q4

REPORT INFORMATION
  Report Type: Spontaneous
  Country: US (occurrence: US)
  Receive Date: 20221215
  Receipt Date: 20221215
  Transmission Date: 20230112
  Serious: Yes (Other)
  Sender: FDA-Public Use
  Company Number: US-CSLP-50300631599-V11353100-23

PATIENT
  Age: 40 Year
  Sex: Female

DRUGS (6)
  1. ANTICOAGULANT SODIUM CITRATE [Suspect]
     Active Substance: SODIUM CITRATE
     Indication: Anticoagulant therapy
     Route: 050
     Dates: start: 20221205, end: 20221205
  2. Zinc daily supplement [Concomitant]
     Indication: Product used for unknown indication
     Dosage: DAILY
  3. Multivitamin daily supplement [Concomitant]
     Indication: Product used for unknown indication
     Dosage: DAILY
  4. Hair skin and nails daily supplement [Concomitant]
     Indication: Product used for unknown indication
     Dosage: DAILY
  5. Cranberry daily supplement [Concomitant]
     Indication: Product used for unknown indication
     Dosage: DAILY
  6. SALINE [Concomitant]
     Active Substance: SODIUM CHLORIDE
     Indication: Product used for unknown indication
     Route: 065
     Dates: start: 20221205, end: 20221205

REACTIONS (9)
  - Loss of consciousness [Recovered/Resolved]
  - Paraesthesia [Recovered/Resolved]
  - Pallor [Recovered/Resolved]
  - Injection site nodule [Recovered/Resolved]
  - Tetany [Recovered/Resolved]
  - Skin discolouration [Recovered/Resolved]
  - Nausea [Recovered/Resolved]
  - Presyncope [Recovered/Resolved]
  - Hypoaesthesia [Recovered/Resolved]

NARRATIVE: CASE EVENT DATE: 20221205
